FAERS Safety Report 8160713-5 (Version None)
Quarter: 2012Q1

REPORT INFORMATION
  Report Type: 
  Country: None (occurrence: None)
  Receive Date: 20120223
  Receipt Date: 20120209
  Transmission Date: 20120608
  Serious: Yes (Hospitalization, Other)
  Sender: FDA-Public Use
  Company Number: PHHY2012BR011729

PATIENT
  Sex: Female

DRUGS (7)
  1. LYRICA [Concomitant]
     Indication: FIBROMYALGIA
     Dosage: 1 DF
     Route: 048
  2. PANTOPRAZOLE [Concomitant]
     Indication: GASTRITIS
     Dosage: 1 DF
     Route: 048
  3. CLONAZEPAM [Concomitant]
     Indication: ANXIETY
     Dosage: 1 DF
     Route: 048
  4. MIACALCIN [Concomitant]
     Indication: OSTEOPOROSIS
     Route: 045
  5. DICLOFENAC SODIUM [Suspect]
     Dosage: 50 MG, Q6H
     Route: 048
  6. DICLOFENAC SODIUM [Suspect]
     Indication: BONE PAIN
     Dosage: 50 MG, Q12H
     Route: 048
  7. CARVEDILOL [Concomitant]
     Indication: HYPERTENSION
     Dosage: 1 DF
     Route: 048

REACTIONS (3)
  - SPINAL FRACTURE [None]
  - MALAISE [None]
  - BLOOD PRESSURE DECREASED [None]
